FAERS Safety Report 7223699-3 (Version None)
Quarter: 2011Q1

REPORT INFORMATION
  Report Type: 
  Country: None (occurrence: None)
  Receive Date: 20110112
  Receipt Date: 20101021
  Transmission Date: 20110831
  Serious: No
  Sender: FDA-Public Use
  Company Number: US-ALLERGAN-1013583US

PATIENT
  Age: 51 Year
  Sex: Female

DRUGS (3)
  1. GENTEAL [Concomitant]
     Indication: DRY EYE
     Dosage: TO BOTH EYES AT NIGHT
     Route: 047
  2. SYSTANE [Concomitant]
     Indication: DRY EYE
     Dosage: EVERY HOUR AS NEEDED
     Route: 047
  3. RESTASIS [Suspect]
     Indication: DRY EYE
     Dosage: 1 GTT, BID
     Route: 047
     Dates: start: 20101016

REACTIONS (4)
  - DIZZINESS [None]
  - APPLICATION SITE PAIN [None]
  - LACRIMATION INCREASED [None]
  - FALL [None]
